FAERS Safety Report 7087076-0 (Version None)
Quarter: 2010Q4

REPORT INFORMATION
  Report Type: 
  Country: None (occurrence: None)
  Receive Date: 20101106
  Receipt Date: 20101027
  Transmission Date: 20110411
  Serious: No
  Sender: FDA-Public Use
  Company Number: US-WYE-H18417410

PATIENT
  Sex: Female
  Weight: 45.4 kg

DRUGS (2)
  1. PREMARIN [Suspect]
     Indication: MENOPAUSAL SYMPTOMS
     Route: 067
     Dates: start: 20100701
  2. PREMARIN [Suspect]
     Indication: VULVOVAGINAL BURNING SENSATION

REACTIONS (4)
  - APPLICATION SITE DRYNESS [None]
  - APPLICATION SITE IRRITATION [None]
  - APPLICATION SITE PAIN [None]
  - DRUG EFFECT DECREASED [None]
